FAERS Safety Report 4543098-2 (Version None)
Quarter: 2004Q4

REPORT INFORMATION
  Report Type: 
  Country: None (occurrence: None)
  Receive Date: 20041229
  Receipt Date: 20041222
  Transmission Date: 20050328
  Serious: Yes (Hospitalization)
  Sender: FDA-Public Use
  Company Number: GBR-2004-0001422

PATIENT
  Age: 46 Year
  Sex: Male

DRUGS (4)
  1. OXYCONTIN [Suspect]
     Indication: PAIN
     Dosage: 20 MG, BID, ORAL
     Route: 048
  2. LYRICA (PREGABALIN) [Concomitant]
     Indication: PAIN
     Dosage: 75 MG, BID, ORAL
     Route: 048
     Dates: start: 20041001
  3. ALCOHOL (ETHANOL) [Suspect]
  4. GABAPENTIN [Concomitant]

REACTIONS (4)
  - ALCOHOL USE [None]
  - DRUG INTERACTION [None]
  - MUSCLE SPASMS [None]
  - SEDATION [None]
